FAERS Safety Report 9437843 (Version 1)
Quarter: 2013Q3

REPORT INFORMATION
  Report Type: Spontaneous
  Country: US (occurrence: US)
  Receive Date: 20130802
  Receipt Date: 20130802
  Transmission Date: 20140515
  Serious: No
  Sender: FDA-Public Use
  Company Number: US-BRISTOL-MYERS SQUIBB COMPANY-18852889

PATIENT
  Age: 58 Year
  Sex: Female
  Weight: 90.25 kg

DRUGS (3)
  1. COUMADIN [Suspect]
     Dates: start: 201302
  2. LOVENOX [Concomitant]
  3. VICODIN [Concomitant]

REACTIONS (8)
  - Alopecia [Unknown]
  - Epistaxis [Unknown]
  - Anaemia [Unknown]
  - Gastritis [Unknown]
  - Helicobacter test positive [Unknown]
  - Movement disorder [Unknown]
  - Haemoptysis [Unknown]
  - Feeling cold [Unknown]
